FAERS Safety Report 9716525 (Version 1)
Quarter: 2013Q4

REPORT INFORMATION
  Report Type: Spontaneous
  Country: US (occurrence: US)
  Receive Date: 20131127
  Receipt Date: 20131127
  Transmission Date: 20140711
  Serious: No
  Sender: FDA-Public Use
  Company Number: US-PFIZER INC-2013336059

PATIENT
  Age: 59 Year
  Sex: Female
  Weight: 73.92 kg

DRUGS (3)
  1. PROTONIX [Suspect]
     Indication: GASTROOESOPHAGEAL REFLUX DISEASE
     Dosage: UNK
  2. PREDNISONE [Suspect]
     Indication: PERITONITIS SCLEROSING
     Dosage: UNK
  3. DETROL LA [Concomitant]
     Dosage: UNK

REACTIONS (2)
  - Gastric disorder [Unknown]
  - Hyperchlorhydria [Unknown]
